APPROVED DRUG PRODUCT: CYCLOGYL
Active Ingredient: CYCLOPENTOLATE HYDROCHLORIDE
Strength: 2%
Dosage Form/Route: SOLUTION/DROPS;OPHTHALMIC
Application: A084108 | Product #001 | TE Code: AT
Applicant: ALCON LABORATORIES INC
Approved: Approved Prior to Jan 1, 1982 | RLD: Yes | RS: Yes | Type: RX